FAERS Safety Report 9613050 (Version 2)
Quarter: 2013Q4

REPORT INFORMATION
  Report Type: Spontaneous
  Country: IT (occurrence: IT)
  Receive Date: 20131010
  Receipt Date: 20131010
  Transmission Date: 20140711
  Serious: Yes (Hospitalization)
  Sender: FDA-Public Use
  Company Number: IT-ABBVIE-13X-083-1132055-00

PATIENT
  Age: 86 Year
  Sex: Female

DRUGS (10)
  1. DEPAKINE CHRONO [Suspect]
     Indication: EPILEPSY
     Dosage: EXTENDED RELEASE
     Route: 048
     Dates: start: 20100101
  2. LASIX [Interacting]
     Indication: HYPERTENSION
     Route: 048
     Dates: start: 20130101
  3. BACTRIM [Interacting]
     Indication: URINARY TRACT INFECTION
     Route: 048
     Dates: start: 20130724, end: 20130725
  4. CONGESCOR [Concomitant]
     Indication: PRODUCT USED FOR UNKNOWN INDICATION
  5. NORVASC [Concomitant]
     Indication: PRODUCT USED FOR UNKNOWN INDICATION
  6. CARDIRENE [Concomitant]
     Indication: PRODUCT USED FOR UNKNOWN INDICATION
  7. NITRODERM [Concomitant]
     Indication: PRODUCT USED FOR UNKNOWN INDICATION
  8. TALOFEN [Concomitant]
     Indication: PRODUCT USED FOR UNKNOWN INDICATION
  9. BACTRIM [Concomitant]
     Indication: PRODUCT USED FOR UNKNOWN INDICATION
     Dates: start: 20130503, end: 20130505
  10. UNASYN [Concomitant]
     Indication: PRODUCT USED FOR UNKNOWN INDICATION

REACTIONS (2)
  - Drug interaction [Unknown]
  - Hyponatraemia [Recovered/Resolved]
